FAERS Safety Report 10253438 (Version 1)
Quarter: 2014Q2

REPORT INFORMATION
  Report Type: Spontaneous
  Country: US (occurrence: US)
  Receive Date: 20140623
  Receipt Date: 20140623
  Transmission Date: 20141212
  Serious: Yes (Death)
  Sender: FDA-Public Use
  Company Number: PHHY2014US073253

PATIENT
  Age: 73 Year
  Sex: Female

DRUGS (5)
  1. TACROLIMUS [Suspect]
     Indication: IMMUNOSUPPRESSION
  2. MYCOPHENOLATE MOFETIL [Suspect]
     Indication: IMMUNOSUPPRESSION
  3. RIBAVIRIN [Suspect]
     Indication: HEPATITIS C
  4. DACLIZUMAB [Suspect]
     Indication: IMMUNOSUPPRESSION
  5. PEGINTERFERON [Suspect]
     Indication: HEPATITIS C

REACTIONS (3)
  - Hepatitis C [Fatal]
  - Liver graft loss [Fatal]
  - No therapeutic response [Unknown]
